FAERS Safety Report 4441810-4 (Version None)
Quarter: 2004Q3

REPORT INFORMATION
  Report Type: 
  Country: None (occurrence: None)
  Receive Date: 20040907
  Receipt Date: 20040817
  Transmission Date: 20050211
  Serious: Yes (Hospitalization)
  Sender: FDA-Public Use
  Company Number: 04P-167-0271149-00

PATIENT
  Age: 56 Year
  Sex: Female
  Weight: 80 kg

DRUGS (7)
  1. HUMIRA [Suspect]
     Indication: RHEUMATOID ARTHRITIS
     Dosage: 40 MG, 1 IN 2 WK, SUBCUTANEOUS
     Route: 058
     Dates: start: 20030517
  2. MELOXICAM [Concomitant]
  3. TRAMADOL HCL [Concomitant]
  4. ALENDRONATE SODIUM [Concomitant]
  5. OMEPRAZOLE [Concomitant]
  6. FENTANYL [Concomitant]
  7. MORPHINE SULFATE [Concomitant]

REACTIONS (1)
  - UTERINE POLYP [None]
